FAERS Safety Report 5559348-X (Version None)
Quarter: 2007Q4

REPORT INFORMATION
  Report Type: 
  Country: None (occurrence: None)
  Receive Date: 20071214
  Receipt Date: 20070928
  Transmission Date: 20080405
  Serious: No
  Sender: FDA-Public Use
  Company Number: US-ABBOTT-07P-163-0419230-00

PATIENT
  Sex: Female
  Weight: 74.002 kg

DRUGS (3)
  1. HUMIRA [Suspect]
     Indication: CROHN'S DISEASE
     Route: 058
     Dates: start: 20070601, end: 20070701
  2. HUMIRA [Suspect]
     Route: 058
     Dates: start: 20070601, end: 20070601
  3. HUMIRA [Suspect]
     Route: 058
     Dates: start: 20070701

REACTIONS (2)
  - AMNESIA [None]
  - HALLUCINATION, VISUAL [None]
